FAERS Safety Report 5574182-2 (Version None)
Quarter: 2007Q4

REPORT INFORMATION
  Report Type: 
  Country: None (occurrence: None)
  Receive Date: 20071130
  Receipt Date: 20070831
  Transmission Date: 20080405
  Serious: No
  Sender: FDA-Public Use
  Company Number: PHEH2007US11822

PATIENT
  Sex: Female

DRUGS (2)
  1. TEKTURNA [Suspect]
     Dosage: 150MG, QPM, 75G AT LUNCH, ORAL
     Route: 048
  2. ISOSORBIDE MONONITRATE [Suspect]

REACTIONS (2)
  - FEELING ABNORMAL [None]
  - HYPERTENSION [None]
